FAERS Safety Report 12912058 (Version 1)
Quarter: 2016Q4

REPORT INFORMATION
  Report Type: Spontaneous
  Country: US (occurrence: US)
  Receive Date: 20161102
  Receipt Date: 20161102
  Transmission Date: 20170207
  Serious: Yes (Hospitalization)
  Sender: FDA-Public Use
  Company Number: None

PATIENT
  Age: 70 Year
  Sex: Male
  Weight: 92.5 kg

DRUGS (1)
  1. ATENOLOL. [Suspect]
     Active Substance: ATENOLOL
     Indication: HYPERTENSION
     Route: 048
     Dates: start: 20061226, end: 20160610

REACTIONS (6)
  - General symptom [None]
  - Orthostatic intolerance [None]
  - Condition aggravated [None]
  - Blood pressure increased [None]
  - Bradycardia [None]
  - Dizziness [None]

NARRATIVE: CASE EVENT DATE: 20160610
